FAERS Safety Report 22059213 (Version 1)
Quarter: 2023Q1

REPORT INFORMATION
  Report Type: Spontaneous
  Country: AR (occurrence: None)
  Receive Date: 20230303
  Receipt Date: 20230303
  Transmission Date: 20230418
  Serious: Yes (Hospitalization)
  Sender: FDA-Public Use
  Company Number: AR-ACS-20230051

PATIENT
  Age: 50 Year
  Sex: Female

DRUGS (3)
  1. CEFAZOLIN [Suspect]
     Active Substance: CEFAZOLIN
     Indication: Bacteraemia
  2. ACENOCOUMAROL [Concomitant]
     Active Substance: ACENOCOUMAROL
  3. CLONAZEPAM [Concomitant]
     Active Substance: CLONAZEPAM

REACTIONS (3)
  - Leukopenia [Unknown]
  - Thrombocytopenia [Unknown]
  - Red blood cell count decreased [Unknown]
